FAERS Safety Report 7000238-3 (Version None)
Quarter: 2010Q3

REPORT INFORMATION
  Report Type: 
  Country: None (occurrence: None)
  Receive Date: 20100920
  Receipt Date: 20070815
  Transmission Date: 20110219
  Serious: Yes (Disabling, Other)
  Sender: FDA-Public Use
  Company Number: US-ASTRAZENECA-2006UW24274

PATIENT
  Age: 13127 Day
  Sex: Female
  Weight: 83.9 kg

DRUGS (18)
  1. SEROQUEL [Suspect]
     Dosage: 50 MG TO 200 MG
     Route: 048
     Dates: start: 20010904, end: 20011105
  2. SEROQUEL [Suspect]
     Route: 048
     Dates: start: 20020227, end: 20020606
  3. SEROQUEL [Suspect]
     Dosage: 100 MG TO 500 MG
     Route: 048
     Dates: start: 20020723
  4. ZYPREXA [Suspect]
     Dates: start: 20020606, end: 20020723
  5. GEODON [Concomitant]
  6. TRILAFON [Concomitant]
  7. ESTRADIOL [Concomitant]
     Route: 048
     Dates: start: 20010424
  8. ZOLOFT [Concomitant]
     Indication: ANXIETY
     Dosage: 50 MG TO 200 MG
     Dates: start: 19980806
  9. LESCOL XR [Concomitant]
     Route: 048
     Dates: start: 20020808
  10. HUMALOG [Concomitant]
     Dosage: 100 IU/L, 18 U T.I.D
     Dates: start: 20020808
  11. LANTUS [Concomitant]
     Dosage: 100 IU/ML, 50 U A DAY
     Dates: start: 20020808
  12. ATENOLOL AND CHLORTHALIDONE [Concomitant]
     Dosage: 50 MG - 25 MG DAILY
     Route: 048
     Dates: start: 20011023
  13. DEXAMETHASONE [Concomitant]
     Dates: start: 20020808
  14. ALTACE [Concomitant]
     Dates: start: 20020808
  15. EFFEXOR XR [Concomitant]
     Dates: start: 19980806
  16. KLONOPIN [Concomitant]
     Dates: start: 20000505
  17. WELLBUTRIN SR [Concomitant]
     Dates: start: 20010904
  18. RISPERDAL [Concomitant]
     Dosage: 1 MG TO 2 MG
     Dates: start: 20011105, end: 20020227

REACTIONS (8)
  - BLOOD CHOLESTEROL INCREASED [None]
  - BLOOD TRIGLYCERIDES INCREASED [None]
  - DIABETES MELLITUS [None]
  - INSULIN RESISTANCE [None]
  - NEURALGIA [None]
  - TYPE 1 DIABETES MELLITUS [None]
  - TYPE 2 DIABETES MELLITUS [None]
  - VISION BLURRED [None]
